FAERS Safety Report 23535065 (Version 3)
Quarter: 2024Q3

REPORT INFORMATION
  Report Type: Report from Study
  Country: BR (occurrence: BR)
  Receive Date: 20240217
  Receipt Date: 20240712
  Transmission Date: 20241017
  Serious: Yes (Hospitalization, Other)
  Sender: JOHNSON AND JOHNSON
  Company Number: BR-JNJFOC-20240158611

PATIENT
  Age: 19 Year
  Sex: Male

DRUGS (4)
  1. INFLIXIMAB [Suspect]
     Active Substance: INFLIXIMAB
     Indication: Crohn^s disease
     Dosage: TSD ALSO REPORTED AS 17/APR/2019
     Route: 041
     Dates: start: 20190425, end: 20221227
  2. REMICADE [Suspect]
     Active Substance: INFLIXIMAB
     Indication: Crohn^s disease
     Dosage: DEC-2019, OR JAN-2020 (INFO IN THE CONTACT) AND 25-APR-2019 (INFORMATION IN PSP SYSTEM); LAST APPLIC
     Route: 041
     Dates: start: 20190425, end: 20221227
  3. ADALIMUMAB [Suspect]
     Active Substance: ADALIMUMAB\ISOPROPYL ALCOHOL
     Indication: Crohn^s disease
     Route: 065
  4. AZATHIOPRINE [Concomitant]
     Active Substance: AZATHIOPRINE
     Indication: Product used for unknown indication
     Dosage: 100MG/DAY
     Route: 065

REACTIONS (10)
  - Leishmaniasis [Recovered/Resolved]
  - Crohn^s disease [Unknown]
  - Anal fistula [Not Recovered/Not Resolved]
  - Haematological infection [Unknown]
  - Gastrointestinal infection [Unknown]
  - Drug specific antibody [Unknown]
  - Wound [Unknown]
  - Decreased immune responsiveness [Unknown]
  - Drug ineffective [Unknown]
  - Product dose omission issue [Unknown]
